FAERS Safety Report 10235069 (Version 1)
Quarter: 2014Q2

REPORT INFORMATION
  Report Type: Spontaneous
  Country: US (occurrence: None)
  Receive Date: 20140611
  Receipt Date: 20140611
  Transmission Date: 20141212
  Serious: Yes (Hospitalization)
  Sender: FDA-Public Use
  Company Number: CIO14039822

PATIENT
  Age: 59 Year
  Sex: Female

DRUGS (1)
  1. PHENYLEPHRINE HYDROCHLORIDE [Suspect]
     Indication: SINUSITIS
     Route: 048

REACTIONS (5)
  - Subarachnoid haemorrhage [None]
  - Headache [None]
  - Hemiparesis [None]
  - Aphasia [None]
  - Cerebral vasoconstriction [None]
